FAERS Safety Report 23417870 (Version 2)
Quarter: 2025Q1

REPORT INFORMATION
  Report Type: Spontaneous
  Country: US (occurrence: US)
  Receive Date: 20240118
  Receipt Date: 20250115
  Transmission Date: 20250409
  Serious: No
  Sender: SK LIFE SCIENCE
  Company Number: US-SK LIFE SCIENCE, INC-SKPVG-2023-001454

PATIENT

DRUGS (12)
  1. XCOPRI [Suspect]
     Active Substance: CENOBAMATE
     Indication: Generalised tonic-clonic seizure
     Route: 048
     Dates: start: 2022
  2. XCOPRI [Suspect]
     Active Substance: CENOBAMATE
     Indication: Partial seizures
     Route: 048
     Dates: start: 20220508
  3. XCOPRI [Suspect]
     Active Substance: CENOBAMATE
     Indication: Seizure
     Route: 048
     Dates: start: 20220726
  4. XCOPRI [Suspect]
     Active Substance: CENOBAMATE
     Indication: Catatonia
     Route: 048
     Dates: start: 20220919
  5. XCOPRI [Suspect]
     Active Substance: CENOBAMATE
     Dosage: 200MG ONCE DAILY AT 11:00 IN THE MORNING
     Route: 048
     Dates: start: 202212
  6. XCOPRI [Suspect]
     Active Substance: CENOBAMATE
     Dosage: 200MG ONCE DAILY AT 11AM
     Route: 048
  7. XCOPRI [Suspect]
     Active Substance: CENOBAMATE
     Dosage: 200MG DAILY, AND AN EXTRA 25MG EVERY OTHER DAY
     Route: 048
  8. XCOPRI [Suspect]
     Active Substance: CENOBAMATE
     Dosage: 200MG DAILY, AND AN EXTRA 25MG EVERY OTHER DAY
     Route: 048
  9. VITAMIN B COMPLEX [Suspect]
     Active Substance: CYANOCOBALAMIN\DEXPANTHENOL\NIACINAMIDE\PYRIDOXINE HYDROCHLORIDE\RIBOFLAVIN 5^-PHOSPHATE SODIUM\THIA
     Indication: Product used for unknown indication
     Dosage: 1000 MCG DAILY X 4 DAYS
     Route: 065
     Dates: start: 20231119, end: 20231122
  10. BRIVIACT [Concomitant]
     Active Substance: BRIVARACETAM
     Indication: Product used for unknown indication
     Route: 065
  11. FLINTSTONES MULTIPLE VITAMINS      /02262201/ [Concomitant]
     Indication: Product used for unknown indication
     Dosage: 1 DAILY
     Route: 065
     Dates: start: 20231119
  12. MINOXIDIL [Concomitant]
     Active Substance: MINOXIDIL
     Indication: Hair disorder
     Route: 065

REACTIONS (20)
  - Product use in unapproved indication [Not Recovered/Not Resolved]
  - Partial seizures [Recovered/Resolved]
  - Seizure [Recovered/Resolved]
  - Hair texture abnormal [Not Recovered/Not Resolved]
  - Alopecia [Not Recovered/Not Resolved]
  - Nail disorder [Not Recovered/Not Resolved]
  - Condition aggravated [Not Recovered/Not Resolved]
  - Product dose omission issue [Recovered/Resolved]
  - Seizure [Recovered/Resolved]
  - Seizure [Not Recovered/Not Resolved]
  - Generalised tonic-clonic seizure [Not Recovered/Not Resolved]
  - Off label use [Not Recovered/Not Resolved]
  - Off label use [Not Recovered/Not Resolved]
  - Speech disorder [Not Recovered/Not Resolved]
  - Dizziness [Not Recovered/Not Resolved]
  - Memory impairment [Recovered/Resolved]
  - Memory impairment [Not Recovered/Not Resolved]
  - Nausea [Not Recovered/Not Resolved]
  - Fatigue [Not Recovered/Not Resolved]
  - Asthenia [Not Recovered/Not Resolved]

NARRATIVE: CASE EVENT DATE: 20220521
